FAERS Safety Report 5314034-6 (Version None)
Quarter: 2007Q2

REPORT INFORMATION
  Report Type: 
  Country: None (occurrence: None)
  Receive Date: 20070501
  Receipt Date: 20070417
  Transmission Date: 20071010
  Serious: Yes (Disabling)
  Sender: FDA-Public Use
  Company Number: JP-ROCHE-436622

PATIENT
  Age: 11 Year
  Sex: Male
  Weight: 40 kg

DRUGS (5)
  1. TAMIFLU [Suspect]
     Route: 048
     Dates: start: 20060210, end: 20060210
  2. MUCODYNE [Concomitant]
     Route: 048
     Dates: start: 20060210
  3. HOMOCLOMIN [Concomitant]
     Route: 048
     Dates: start: 20060210
  4. CALONAL [Concomitant]
     Dosage: TAKEN AS NEEDED.
     Route: 048
  5. MEDICON [Concomitant]
     Route: 048
     Dates: start: 20060210

REACTIONS (1)
  - ABNORMAL BEHAVIOUR [None]
